FAERS Safety Report 16740365 (Version 1)
Quarter: 2019Q3

REPORT INFORMATION
  Report Type: Spontaneous
  Country: CA (occurrence: CA)
  Receive Date: 20190826
  Receipt Date: 20190826
  Transmission Date: 20191005
  Serious: Yes (Other)
  Sender: FDA-Public Use
  Company Number: CA-BAYER-2019-149923

PATIENT
  Age: 57 Year
  Sex: Female

DRUGS (6)
  1. METHOTREXATE. [Concomitant]
     Active Substance: METHOTREXATE
     Dosage: 2.5MG PO T8T WEEKLY
     Dates: start: 201907
  2. FOLIC ACID. [Concomitant]
     Active Substance: FOLIC ACID
     Dosage: 5MG 6 TIMES PER WEEK
     Dates: start: 201907
  3. CYANOCOBALAMIN. [Concomitant]
     Active Substance: CYANOCOBALAMIN
     Dosage: 1000 MCG/ML VIAL
  4. FLAGYL [METRONIDAZOLE BENZOATE] [Concomitant]
     Active Substance: METRONIDAZOLE BENZOATE
     Dosage: 500MG PO BID - LOE
     Route: 048
  5. CIPRO [Suspect]
     Active Substance: CIPROFLOXACIN HYDROCHLORIDE
     Dosage: 500 MG, BID
     Dates: start: 201903
  6. OXYCODONE [Concomitant]
     Active Substance: OXYCODONE
     Indication: PAIN
     Dosage: UNK

REACTIONS (5)
  - Stent placement [None]
  - Nausea [None]
  - Nephrolithiasis [None]
  - Lithotripsy [None]
  - Female genital tract fistula [None]

NARRATIVE: CASE EVENT DATE: 20190702
